FAERS Safety Report 17362720 (Version 1)
Quarter: 2020Q1

REPORT INFORMATION
  Report Type: Spontaneous
  Country: US (occurrence: US)
  Receive Date: 20200202
  Receipt Date: 20200202
  Transmission Date: 20200409
  Serious: Yes (Hospitalization)
  Sender: FDA-Public Use
  Company Number: None

PATIENT
  Age: 61 Year
  Sex: Male

DRUGS (8)
  1. OBINUTUZUMAB. [Suspect]
     Active Substance: OBINUTUZUMAB
     Indication: CHRONIC LYMPHOCYTIC LEUKAEMIA
     Route: 042
     Dates: start: 20191120, end: 20191120
  2. PREDNISONE. [Concomitant]
     Active Substance: PREDNISONE
     Dates: start: 20191121, end: 20191125
  3. MEPERIDINE [Concomitant]
     Active Substance: MEPERIDINE
     Dates: start: 20191120, end: 20191120
  4. CEFEPIME [Concomitant]
     Active Substance: CEFEPIME HYDROCHLORIDE
     Dates: start: 20191120
  5. FAMOTIDINE. [Concomitant]
     Active Substance: FAMOTIDINE
     Dates: start: 20191120, end: 20191120
  6. DIPHENHYDRAMINE. [Concomitant]
     Active Substance: DIPHENHYDRAMINE
     Dates: start: 20191120, end: 20191120
  7. VANCOMYCIN [Concomitant]
     Active Substance: VANCOMYCIN
     Dates: start: 20191121
  8. ACETAMINOPHEN. [Concomitant]
     Active Substance: ACETAMINOPHEN
     Dates: start: 20191120, end: 20191120

REACTIONS (4)
  - Hypotension [None]
  - Chills [None]
  - Infusion related reaction [None]
  - Nausea [None]

NARRATIVE: CASE EVENT DATE: 20191120
